FAERS Safety Report 18529112 (Version 1)
Quarter: 2020Q4

REPORT INFORMATION
  Report Type: Spontaneous
  Country: JP (occurrence: JP)
  Receive Date: 20201120
  Receipt Date: 20201120
  Transmission Date: 20210114
  Serious: Yes (Other)
  Sender: FDA-Public Use
  Company Number: JP-ELI_LILLY_AND_COMPANY-JP202011007911

PATIENT
  Age: 62 Year
  Sex: Male
  Weight: 57 kg

DRUGS (21)
  1. IFOMIDE [Suspect]
     Active Substance: IFOSFAMIDE
     Indication: MALIGNANT FIBROUS HISTIOCYTOMA
     Dosage: 3.3 G
     Route: 042
     Dates: start: 20200508
  2. SYMPROIC [Concomitant]
     Active Substance: NALDEMEDINE
  3. TELMISARTAN. [Concomitant]
     Active Substance: TELMISARTAN
  4. CERCINE [Concomitant]
     Active Substance: DIAZEPAM
  5. UROMITEXAN [Suspect]
     Active Substance: MESNA
     Indication: URINARY TRACT DISORDER PROPHYLAXIS
     Dosage: 670 MG, TID
     Route: 042
     Dates: start: 20200508
  6. RANMARK [Concomitant]
     Active Substance: DENOSUMAB
  7. SOLDEM 3A [Concomitant]
     Active Substance: CARBOHYDRATES\POTASSIUM CHLORIDE\SODIUM CHLORIDE\SODIUM LACTATE
  8. DEXART [Concomitant]
     Active Substance: DEXAMETHASONE SODIUM PHOSPHATE
  9. NEXIUM [Concomitant]
     Active Substance: ESOMEPRAZOLE MAGNESIUM
  10. AMLODIPINE [Concomitant]
     Active Substance: AMLODIPINE BESYLATE
  11. DULOXETINE HYDROCHLORIDE. [Suspect]
     Active Substance: DULOXETINE HYDROCHLORIDE
     Indication: PRODUCT USED FOR UNKNOWN INDICATION
     Route: 048
  12. BICANATE [Concomitant]
  13. LYRICA [Concomitant]
     Active Substance: PREGABALIN
  14. DOXORUBICIN HYDROCHLORIDE. [Suspect]
     Active Substance: DOXORUBICIN HYDROCHLORIDE
     Indication: MALIGNANT FIBROUS HISTIOCYTOMA
     Dosage: 40 MG
     Route: 042
     Dates: start: 20200508
  15. DENOTAS [Concomitant]
     Active Substance: CALCIUM CARBONATE\CHOLECALCIFEROL\MAGNESIUM CARBONATE
  16. MAGNESIUM OXIDE. [Concomitant]
     Active Substance: MAGNESIUM OXIDE
  17. SODIUM PICOSULFATE [Concomitant]
     Active Substance: SODIUM PICOSULFATE
  18. ALOXI [Concomitant]
     Active Substance: PALONOSETRON HYDROCHLORIDE
  19. MANNITOL. [Concomitant]
     Active Substance: MANNITOL
  20. URINORM [BENZBROMARONE] [Concomitant]
  21. SENNOSIDE [SENNOSIDE A+B] [Concomitant]
     Active Substance: SENNOSIDES A AND B

REACTIONS (2)
  - Neutrophil count decreased [Recovered/Resolved]
  - White blood cell count decreased [Recovered/Resolved]

NARRATIVE: CASE EVENT DATE: 20200516
